FAERS Safety Report 12881041 (Version 6)
Quarter: 2017Q1

REPORT INFORMATION
  Report Type: Spontaneous
  Country: US (occurrence: US)
  Receive Date: 20161025
  Receipt Date: 20170105
  Transmission Date: 20170428
  Serious: Yes (Other)
  Sender: FDA-Public Use
  Company Number: US-JNJFOC-20160901268

PATIENT
  Age: 5 Year
  Sex: Male

DRUGS (18)
  1. RISPERDAL [Suspect]
     Active Substance: RISPERIDONE
     Indication: AGITATION
     Dosage: VARYING DOSES OF 0.25 MG AND 0.5 MG
     Route: 048
     Dates: start: 200208, end: 200803
  2. RISPERDAL [Suspect]
     Active Substance: RISPERIDONE
     Indication: SENSORY INTEGRATIVE DYSFUNCTION
     Dosage: VARYING DOSES OF 0.25 MG AND 0.5 MG
     Route: 048
     Dates: start: 200208, end: 200803
  3. RISPERDAL [Suspect]
     Active Substance: RISPERIDONE
     Indication: OPPOSITIONAL DEFIANT DISORDER
     Dosage: VARYING DOSES OF 0.25 MG AND 0.5 MG
     Route: 048
     Dates: start: 200208, end: 200803
  4. RISPERIDONE. [Suspect]
     Active Substance: RISPERIDONE
     Indication: SENSORY INTEGRATIVE DYSFUNCTION
     Route: 048
     Dates: start: 200707, end: 201210
  5. RISPERIDONE. [Suspect]
     Active Substance: RISPERIDONE
     Indication: OPPOSITIONAL DEFIANT DISORDER
     Route: 048
     Dates: start: 200707, end: 201210
  6. DEPAKOTE [Suspect]
     Active Substance: DIVALPROEX SODIUM
     Indication: PRODUCT USED FOR UNKNOWN INDICATION
     Route: 065
  7. RISPERDAL [Suspect]
     Active Substance: RISPERIDONE
     Indication: ATTENTION DEFICIT/HYPERACTIVITY DISORDER
     Dosage: VARYING DOSES OF 0.25 MG AND 0.5 MG
     Route: 048
     Dates: start: 200208, end: 200803
  8. RISPERIDONE. [Suspect]
     Active Substance: RISPERIDONE
     Indication: LANGUAGE DISORDER
     Route: 048
     Dates: start: 200707, end: 201210
  9. RISPERIDONE. [Suspect]
     Active Substance: RISPERIDONE
     Indication: AUTISM SPECTRUM DISORDER
     Route: 048
     Dates: start: 201402, end: 201404
  10. RISPERIDONE. [Suspect]
     Active Substance: RISPERIDONE
     Indication: ATTENTION DEFICIT/HYPERACTIVITY DISORDER
     Route: 048
     Dates: start: 201402, end: 201404
  11. RISPERDAL [Suspect]
     Active Substance: RISPERIDONE
     Indication: AUTISM SPECTRUM DISORDER
     Dosage: VARYING DOSES OF 0.25 MG AND 0.5 MG
     Route: 048
     Dates: start: 200208, end: 200803
  12. RISPERIDONE. [Suspect]
     Active Substance: RISPERIDONE
     Indication: SENSORY INTEGRATIVE DYSFUNCTION
     Route: 048
     Dates: start: 201402, end: 201404
  13. CONCERTA [Suspect]
     Active Substance: METHYLPHENIDATE HYDROCHLORIDE
     Indication: PRODUCT USED FOR UNKNOWN INDICATION
     Route: 048
  14. RISPERIDONE. [Suspect]
     Active Substance: RISPERIDONE
     Indication: LANGUAGE DISORDER
     Route: 048
     Dates: start: 201402, end: 201404
  15. RISPERIDONE. [Suspect]
     Active Substance: RISPERIDONE
     Indication: AUTISM SPECTRUM DISORDER
     Route: 048
     Dates: start: 200707, end: 201210
  16. RISPERDAL [Suspect]
     Active Substance: RISPERIDONE
     Indication: LANGUAGE DISORDER
     Dosage: VARYING DOSES OF 0.25 MG AND 0.5 MG
     Route: 048
     Dates: start: 200208, end: 200803
  17. RISPERIDONE. [Suspect]
     Active Substance: RISPERIDONE
     Indication: OPPOSITIONAL DEFIANT DISORDER
     Route: 048
     Dates: start: 201402, end: 201404
  18. RISPERIDONE. [Suspect]
     Active Substance: RISPERIDONE
     Indication: ATTENTION DEFICIT/HYPERACTIVITY DISORDER
     Route: 048
     Dates: start: 200707, end: 201210

REACTIONS (6)
  - Product use issue [Unknown]
  - Weight increased [Unknown]
  - Somnolence [Unknown]
  - Gynaecomastia [Not Recovered/Not Resolved]
  - Emotional disorder [Unknown]
  - Off label use [Unknown]

NARRATIVE: CASE EVENT DATE: 200208
